FAERS Safety Report 15366719 (Version 1)
Quarter: 2018Q3

REPORT INFORMATION
  Report Type: Spontaneous
  Country: US (occurrence: US)
  Receive Date: 20180901
  Receipt Date: 20180901
  Transmission Date: 20181010
  Serious: Yes (Life-Threatening, Hospitalization, Disabling, Other)
  Sender: FDA-Public Use
  Company Number: None

PATIENT
  Age: 52 Year
  Sex: Female
  Weight: 92.25 kg

DRUGS (6)
  1. NEUROTIN [Concomitant]
     Active Substance: GABAPENTIN
  2. MULTI?VITAMIN [Concomitant]
     Active Substance: .ALPHA.-TOCOPHEROL ACETATE, DL-\ASCORBIC ACID\CYANOCOBALAMIN\FLUORIDE ION\FOLIC ACID\NIACIN\PYRIDOXINE\RIBOFLAVIN\THIAMINE\VITAMIN A\VITAMIN D
  3. TRAJENTA [Concomitant]
     Active Substance: LINAGLIPTIN
  4. HUMALOG [Concomitant]
     Active Substance: INSULIN LISPRO
  5. BASAGLAR [Concomitant]
     Active Substance: INSULIN GLARGINE
  6. TOUJEO [Suspect]
     Active Substance: INSULIN GLARGINE
     Indication: TYPE 2 DIABETES MELLITUS
     Route: 058

REACTIONS (4)
  - Necrotising fasciitis [None]
  - Fatigue [None]
  - Hernia [None]
  - Fungal infection [None]

NARRATIVE: CASE EVENT DATE: 20170410
